FAERS Safety Report 5651380-0 (Version None)
Quarter: 2008Q1

REPORT INFORMATION
  Report Type: 
  Country: None (occurrence: None)
  Receive Date: 20080305
  Receipt Date: 20080228
  Transmission Date: 20080703
  Serious: Yes (Other)
  Sender: FDA-Public Use
  Company Number: PE-GILEAD-2008-0015497

PATIENT
  Sex: Male

DRUGS (3)
  1. TRUVADA [Suspect]
     Indication: HIV INFECTION
     Dosage: 100/300 MG
     Route: 048
     Dates: start: 20060614, end: 20080222
  2. KALETRA [Suspect]
     Indication: HIV INFECTION
     Dosage: 800-200 MG
     Route: 048
     Dates: start: 20060614, end: 20080222
  3. MIGRADORIXINA [Concomitant]
     Indication: HEADACHE
     Route: 065
     Dates: start: 20080219, end: 20080219

REACTIONS (1)
  - RHABDOMYOLYSIS [None]
